FAERS Safety Report 4519584-8 (Version None)
Quarter: 2004Q4

REPORT INFORMATION
  Report Type: 
  Country: None (occurrence: None)
  Receive Date: 20041206
  Receipt Date: 20041129
  Transmission Date: 20050328
  Serious: Yes (Life-Threatening)
  Sender: FDA-Public Use
  Company Number: US-MERCK-0411USA04125

PATIENT
  Age: 79 Year
  Sex: Female

DRUGS (3)
  1. VIOXX [Suspect]
     Indication: SPINAL DISORDER
     Route: 048
     Dates: start: 20030101
  2. PLAVIX [Suspect]
     Route: 065
  3. DIURETIC (UNSPECIFIED) [Concomitant]
     Route: 065

REACTIONS (8)
  - ABASIA [None]
  - ABDOMINAL PAIN UPPER [None]
  - ANAL DISCOMFORT [None]
  - CARDIAC DISORDER [None]
  - DYSGEUSIA [None]
  - EPISTAXIS [None]
  - HEADACHE [None]
  - THROMBOSIS [None]
